FAERS Safety Report 5870613-9 (Version None)
Quarter: 2008Q3

REPORT INFORMATION
  Report Type: 
  Country: None (occurrence: None)
  Receive Date: 20080904
  Receipt Date: 20080901
  Transmission Date: 20090109
  Serious: Yes (Hospitalization)
  Sender: FDA-Public Use
  Company Number: B0533959A

PATIENT
  Age: 76 Year
  Sex: Male
  Weight: 56 kg

DRUGS (8)
  1. ZOVIRAX [Suspect]
     Indication: HERPES ZOSTER
     Dosage: 250MG PER DAY
     Route: 042
     Dates: start: 20080814
  2. LANSOPRAZOLE [Concomitant]
     Route: 048
  3. PREDONINE [Concomitant]
     Route: 065
  4. BUFFERIN [Concomitant]
     Route: 048
  5. ALFAROL [Concomitant]
     Route: 048
  6. FERROMIA [Concomitant]
     Route: 048
  7. TANKARU [Concomitant]
     Route: 048
  8. NOVORAPID [Concomitant]
     Route: 065

REACTIONS (4)
  - ANOREXIA [None]
  - CYANOPSIA [None]
  - HALLUCINATION, AUDITORY [None]
  - VOMITING [None]
